FAERS Safety Report 7732234-2 (Version None)
Quarter: 2011Q3

REPORT INFORMATION
  Report Type: 
  Country: None (occurrence: None)
  Receive Date: 20110906
  Receipt Date: 20110826
  Transmission Date: 20111222
  Serious: Yes (Hospitalization, Disabling)
  Sender: FDA-Public Use
  Company Number: GB-ELI_LILLY_AND_COMPANY-GB201108007858

PATIENT
  Age: 65 Year
  Sex: Female

DRUGS (10)
  1. ENOXAPARIN SODIUM [Concomitant]
  2. METFORMIN HCL [Concomitant]
  3. BYETTA [Suspect]
     Indication: HYPERGLYCAEMIA
     Dosage: 5 UG, UNK
     Route: 058
     Dates: start: 20081001, end: 20081101
  4. VICTOZA [Concomitant]
     Indication: HYPERGLYCAEMIA
     Dosage: 1.2 MG, UNK
     Route: 058
     Dates: start: 20091101, end: 20110802
  5. LEVOTHYROXINE SODIUM [Concomitant]
  6. SIMVASTATIN [Concomitant]
  7. TRAMADOL HYDROCHLORIDE [Concomitant]
  8. GLIMEPIRIDE [Concomitant]
  9. OMEPRAZOLE [Concomitant]
  10. ACETAMINOPHEN [Concomitant]

REACTIONS (1)
  - METASTASES TO LIVER [None]
